FAERS Safety Report 5844962-4 (Version None)
Quarter: 2008Q3

REPORT INFORMATION
  Report Type: 
  Country: None (occurrence: None)
  Receive Date: 20080813
  Receipt Date: 20080813
  Transmission Date: 20090109
  Serious: Yes (Death)
  Sender: FDA-Public Use
  Company Number: None

PATIENT
  Sex: Female

DRUGS (14)
  1. REVLIMID [Suspect]
     Indication: MULTIPLE MYELOMA
     Dosage: 15MG DAILY X21D/28D ORALLY
     Route: 048
  2. ASPIRIN [Concomitant]
  3. CELEXA [Concomitant]
  4. SEROQUEL [Concomitant]
  5. ROXANOL [Concomitant]
  6. FENTANYL TRANSDERMAL SYSTEM [Concomitant]
  7. TYLENOLOL #3 [Concomitant]
  8. NEURONTIN [Concomitant]
  9. LORAZEPAM [Concomitant]
  10. PHENOBARBITAL TAB [Concomitant]
  11. LACTULOSE [Concomitant]
  12. ARICEPT [Concomitant]
  13. FAMOTADINE [Concomitant]
  14. MULTI-VITAMIN [Concomitant]

REACTIONS (1)
  - DISEASE PROGRESSION [None]
